FAERS Safety Report 7812680-9 (Version None)
Quarter: 2011Q4

REPORT INFORMATION
  Report Type: 
  Country: None (occurrence: None)
  Receive Date: 20111013
  Receipt Date: 20110929
  Transmission Date: 20120403
  Serious: Yes (Hospitalization)
  Sender: FDA-Public Use
  Company Number: FR-ELI_LILLY_AND_COMPANY-FR201109008309

PATIENT
  Sex: Female

DRUGS (6)
  1. REMICADE [Concomitant]
     Indication: PSORIATIC ARTHROPATHY
     Dosage: 250 MG, UNK
     Route: 042
     Dates: start: 20090331, end: 20110301
  2. KETOPROFEN [Concomitant]
     Indication: PSORIATIC ARTHROPATHY
     Route: 048
  3. NEXIUM [Concomitant]
     Dosage: 1 DF, QD
     Route: 048
  4. CYMBALTA [Suspect]
     Indication: PSORIATIC ARTHROPATHY
     Dosage: 60 MG, QD
     Route: 048
  5. MYOLASTAN [Concomitant]
     Indication: PSORIATIC ARTHROPATHY
     Dosage: 1 DF, QD
     Route: 048
  6. METHOTREXATE SODIUM [Concomitant]
     Indication: PSORIATIC ARTHROPATHY
     Dosage: 1 DF, QD
     Route: 058

REACTIONS (8)
  - MALAISE [None]
  - ASTHENIA [None]
  - PALLOR [None]
  - MUSCLE SPASTICITY [None]
  - GAIT DISTURBANCE [None]
  - FALL [None]
  - STRABISMUS [None]
  - OFF LABEL USE [None]
